FAERS Safety Report 9169504 (Version 1)
Quarter: 2013Q1

REPORT INFORMATION
  Report Type: Spontaneous
  Country: US (occurrence: US)
  Receive Date: 20130318
  Receipt Date: 20130318
  Transmission Date: 20140127
  Serious: No
  Sender: FDA-Public Use
  Company Number: US-TEVA-392760USA

PATIENT
  Age: 30 Year
  Sex: Female
  Weight: 58.11 kg

DRUGS (2)
  1. PLAN B ONE-STEP [Suspect]
     Indication: POST COITAL CONTRACEPTION
     Dosage: 1.5 MILLIGRAM DAILY;
     Route: 048
     Dates: start: 20130128, end: 20130128
  2. OMEPRAZOLE [Concomitant]
     Indication: GASTROOESOPHAGEAL REFLUX DISEASE
     Dates: start: 201211

REACTIONS (6)
  - Breast discomfort [Not Recovered/Not Resolved]
  - Nipple disorder [Not Recovered/Not Resolved]
  - Paraesthesia [Not Recovered/Not Resolved]
  - Metrorrhagia [Recovered/Resolved]
  - Menstruation delayed [Not Recovered/Not Resolved]
  - Pelvic pain [Not Recovered/Not Resolved]
